FAERS Safety Report 6665234-4 (Version None)
Quarter: 2010Q1

REPORT INFORMATION
  Report Type: 
  Country: None (occurrence: None)
  Receive Date: 20100325
  Receipt Date: 20100223
  Transmission Date: 20100710
  Serious: No
  Sender: FDA-Public Use
  Company Number: 2010-00281

PATIENT
  Age: 62 Year
  Sex: Male
  Weight: 124.7392 kg

DRUGS (6)
  1. ZICAM COLD REMEDY NASAL GEL [Suspect]
     Dosage: 1 WEEK
     Dates: start: 20090601
  2. COZAAR [Concomitant]
  3. DIGOXIN [Concomitant]
  4. SYNTHROID [Concomitant]
  5. TYLENOL W/ CODEINE NO. 3 [Concomitant]
  6. MULTI-VITAMIN [Concomitant]

REACTIONS (2)
  - AGEUSIA [None]
  - ANOSMIA [None]
